FAERS Safety Report 6955620-7 (Version None)
Quarter: 2010Q3

REPORT INFORMATION
  Report Type: 
  Country: None (occurrence: None)
  Receive Date: 20100826
  Receipt Date: 20100826
  Transmission Date: 20110219
  Serious: Yes (Other)
  Sender: FDA-Public Use
  Company Number: None

PATIENT
  Sex: Female
  Weight: 58.0604 kg

DRUGS (1)
  1. MIRENA [Suspect]
     Indication: CONTRACEPTION
     Dates: start: 20090901, end: 20100831

REACTIONS (5)
  - DYSPAREUNIA [None]
  - MIGRAINE [None]
  - MOOD SWINGS [None]
  - SMEAR CERVIX ABNORMAL [None]
  - WEIGHT INCREASED [None]
